FAERS Safety Report 4336979-6 (Version None)
Quarter: 2004Q2

REPORT INFORMATION
  Report Type: 
  Country: None (occurrence: None)
  Receive Date: 20040408
  Receipt Date: 20040324
  Transmission Date: 20050107
  Serious: Yes (Hospitalization)
  Sender: FDA-Public Use
  Company Number: ATO-04-0267

PATIENT
  Age: 65 Year
  Sex: Female
  Weight: 64.8644 kg

DRUGS (4)
  1. TRISENOX [Suspect]
     Indication: MULTIPLE MYELOMA
  2. MELPHALAN [Suspect]
     Indication: MULTIPLE MYELOMA
  3. MELPHALAN [Suspect]
     Indication: MULTIPLE MYELOMA
  4. ASCORBIC ACID [Suspect]
     Indication: MULTIPLE MYELOMA

REACTIONS (11)
  - ANOREXIA [None]
  - ASTHENIA [None]
  - BLOOD UREA INCREASED [None]
  - DISORIENTATION [None]
  - HAEMOGLOBIN DECREASED [None]
  - LEUKOPENIA [None]
  - MOBILITY DECREASED [None]
  - PNEUMONIA [None]
  - PRODUCTIVE COUGH [None]
  - PYREXIA [None]
  - SEPSIS [None]
